FAERS Safety Report 4567073-7 (Version None)
Quarter: 2005Q1

REPORT INFORMATION
  Report Type: 
  Country: None (occurrence: None)
  Receive Date: 20050201
  Receipt Date: 20050125
  Transmission Date: 20050727
  Serious: Yes (Life-Threatening, Hospitalization)
  Sender: FDA-Public Use
  Company Number: US-ROCHE-393650

PATIENT
  Age: 73 Year
  Sex: Male
  Weight: 65.8 kg

DRUGS (12)
  1. INTERFERON ALFA [Suspect]
     Indication: RENAL CANCER METASTATIC
     Dosage: CUMULATIVE DOSE RECEIVED = 27 MIU.
     Route: 058
     Dates: start: 20041108, end: 20041119
  2. AMLODIPINE BESYLATE [Concomitant]
     Route: 048
  3. ACETYLSALICYLIC ACID SRT [Concomitant]
     Route: 048
  4. PAROXETINE HYDROCHLORIDE [Concomitant]
     Route: 048
     Dates: start: 20041108
  5. ZOLPIDEM TARTRATE [Concomitant]
     Route: 048
  6. HYDROCODONE [Concomitant]
     Route: 048
     Dates: start: 20040621
  7. IBUPROFEN [Concomitant]
     Route: 048
     Dates: start: 20040621
  8. PROMETHAZINE [Concomitant]
     Route: 048
     Dates: start: 20041027
  9. NYSTATIN [Concomitant]
     Route: 048
     Dates: start: 20041115
  10. FERROUS SULFATE TAB [Concomitant]
     Route: 048
     Dates: start: 20041027
  11. MEGESTROL ACETATE [Concomitant]
     Route: 048
     Dates: start: 20041108
  12. ESCITALOPRAM [Concomitant]
     Route: 048
     Dates: start: 20041105, end: 20041107

REACTIONS (7)
  - ANAEMIA [None]
  - ANOREXIA [None]
  - DEHYDRATION [None]
  - HYPERKALAEMIA [None]
  - NAUSEA [None]
  - PERFORMANCE STATUS DECREASED [None]
  - WEIGHT DECREASED [None]
